FAERS Safety Report 9230722 (Version 1)
Quarter: 2013Q2

REPORT INFORMATION
  Report Type: Spontaneous
  Country: SE (occurrence: SE)
  Receive Date: 20130415
  Receipt Date: 20130415
  Transmission Date: 20140414
  Serious: Yes (Hospitalization)
  Sender: FDA-Public Use
  Company Number: SE-GE HEALTHCARE MEDICAL DIAGNOSTICS-OMPQ-NO-1304S-0450

PATIENT
  Age: 25 Year
  Sex: Female

DRUGS (2)
  1. OMNIPAQUE [Suspect]
     Indication: PRODUCT USED FOR UNKNOWN INDICATION
     Route: 042
     Dates: start: 20130204, end: 20130204
  2. OMNIPAQUE [Suspect]
     Indication: DIAGNOSTIC PROCEDURE

REACTIONS (2)
  - Pharyngeal oedema [Unknown]
  - Nausea [Unknown]
